FAERS Safety Report 4581845-4 (Version None)
Quarter: 2005Q1

REPORT INFORMATION
  Report Type: 
  Country: None (occurrence: None)
  Receive Date: 20050214
  Receipt Date: 20040318
  Transmission Date: 20050727
  Serious: No
  Sender: FDA-Public Use
  Company Number: US-GLAXOSMITHKLINE-A0503439A

PATIENT
  Age: 49 Year
  Sex: Male

DRUGS (3)
  1. LAMICTAL [Suspect]
     Indication: BIPOLAR DISORDER
     Dosage: 100MG PER DAY
     Route: 048
     Dates: start: 20040101
  2. DEPAKOTE [Suspect]
     Dates: end: 20040317
  3. CLONAZEPAM [Concomitant]

REACTIONS (1)
  - LIBIDO DECREASED [None]
